FAERS Safety Report 4791610-0 (Version None)
Quarter: 2005Q4

REPORT INFORMATION
  Report Type: 
  Country: None (occurrence: None)
  Receive Date: 20051007
  Receipt Date: 20050622
  Transmission Date: 20060501
  Serious: No
  Sender: FDA-Public Use
  Company Number: US-BRISTOL-MYERS SQUIBB COMPANY-13011978

PATIENT
  Age: 82 Year
  Sex: Female
  Weight: 63 kg

DRUGS (3)
  1. AVAPRO [Suspect]
     Indication: HYPERTENSION
     Dates: start: 20050613
  2. ASPIRIN [Concomitant]
  3. SYNTHROID [Concomitant]

REACTIONS (2)
  - ASTHENIA [None]
  - CONSTIPATION [None]
